FAERS Safety Report 6069433-4 (Version None)
Quarter: 2009Q1

REPORT INFORMATION
  Report Type: 
  Country: None (occurrence: None)
  Receive Date: 20090206
  Receipt Date: 20090122
  Transmission Date: 20090719
  Serious: Yes (Other)
  Sender: FDA-Public Use
  Company Number: JP-BRISTOL-MYERS SQUIBB COMPANY-14488019

PATIENT
  Age: 32 Year
  Sex: Male

DRUGS (6)
  1. ABILIFY [Suspect]
     Indication: SCHIZOPHRENIA
     Dosage: 19JUL08 TO 01AUG08 POWDER 10 MG(54DAYS)
     Route: 048
     Dates: start: 20080802, end: 20080823
  2. ABILIFY [Suspect]
     Indication: SCHIZOPHRENIA
     Dosage: 24AUG08TO16OCT08(TABLET)18MG(54DAYS): 7OCT08TOUNK 30MGTAB.OD
     Route: 048
     Dates: start: 20080824, end: 20081016
  3. RISPERDAL [Concomitant]
     Dates: start: 20080604
  4. FLUNITRAZEPAM [Concomitant]
     Dosage: TAB
     Dates: start: 20080604
  5. WYPAX [Concomitant]
     Dosage: TAB
     Dates: start: 20080604
  6. BIPERIDEN HYDROCHLORIDE TAB [Concomitant]
     Dates: start: 20080604

REACTIONS (2)
  - INSOMNIA [None]
  - PERSECUTORY DELUSION [None]
